FAERS Safety Report 21779828 (Version 1)
Quarter: 2022Q4

REPORT INFORMATION
  Report Type: Spontaneous
  Country: NL (occurrence: NL)
  Receive Date: 20221226
  Receipt Date: 20221226
  Transmission Date: 20230113
  Serious: Yes (Life-Threatening)
  Sender: FDA-Public Use
  Company Number: None

PATIENT
  Sex: Male
  Weight: 75 kg

DRUGS (4)
  1. UPADACITINIB [Suspect]
     Active Substance: UPADACITINIB
     Indication: Eczema
     Dosage: 2DD 1 TABLET
     Route: 048
     Dates: start: 20211230, end: 20221128
  2. CLOBETASOL [Concomitant]
     Active Substance: CLOBETASOL
     Indication: Product used for unknown indication
     Dosage: ZALF, 0,5 MG/G (MILLIGRAM PER GRAM)? 0.05%
  3. HYDROXYZINE [Concomitant]
     Active Substance: HYDROXYZINE HYDROCHLORIDE
     Indication: Product used for unknown indication
     Dosage: 20 MG/DAG?TABLET OMHULD  10MG /
  4. TRIAMCINOLONE ACETONIDE [Concomitant]
     Active Substance: TRIAMCINOLONE ACETONIDE
     Indication: Product used for unknown indication
     Dosage: ZALF, 1 MG/G (MILLIGRAM PER GRAM)

REACTIONS (1)
  - Pulmonary embolism [Recovering/Resolving]
